FAERS Safety Report 14513443 (Version 1)
Quarter: 2018Q1

REPORT INFORMATION
  Report Type: Spontaneous
  Country: US (occurrence: US)
  Receive Date: 20180209
  Receipt Date: 20180209
  Transmission Date: 20180509
  Serious: No
  Sender: FDA-Public Use
  Company Number: US-ALLERGAN-1700608US

PATIENT
  Age: 55 Year
  Sex: Female
  Weight: 78.5 kg

DRUGS (3)
  1. REFRESH OPTIVE ADVANCED [Suspect]
     Active Substance: CARBOXYMETHYLCELLULOSE SODIUM\GLYCERIN\POLYSORBATE 80
     Indication: PRODUCT USED FOR UNKNOWN INDICATION
     Route: 047
  2. RESTASIS [Suspect]
     Active Substance: CYCLOSPORINE
     Dosage: 2 GTT, QD
     Route: 047
     Dates: start: 201701
  3. RESTASIS [Suspect]
     Active Substance: CYCLOSPORINE
     Indication: DRY EYE
     Dosage: UNK, BID
     Route: 047
     Dates: start: 2010, end: 2011

REACTIONS (7)
  - Vision blurred [Not Recovered/Not Resolved]
  - Drug dose omission [Unknown]
  - Product storage error [Unknown]
  - Dry eye [Not Recovered/Not Resolved]
  - Apraxia [Not Recovered/Not Resolved]
  - Wrong technique in product usage process [Unknown]
  - Eye irritation [Unknown]

NARRATIVE: CASE EVENT DATE: 2017
